FAERS Safety Report 8819857 (Version 1)
Quarter: 2012Q4

REPORT INFORMATION
  Report Type: 
  Country: US (occurrence: US)
  Receive Date: 20121002
  Receipt Date: 20121002
  Transmission Date: 20130627
  Serious: Yes (Other)
  Sender: FDA-Public Use
  Company Number: US-BAYER-2012-098349

PATIENT
  Age: 84 Year
  Sex: Female
  Weight: 69 kg

DRUGS (13)
  1. BAYER GENUINE ASPIRIN ORIGINAL STRENGTH [Suspect]
     Dosage: 1 DF, QD
  2. PHILLIPS^ COLON HEALTH [Suspect]
     Dosage: 1 DF, BID
  3. SPIRONOLACTONE AND HYDROCHLOROTHIAZIDE 25/25 [Concomitant]
     Indication: JOINT SWELLING
     Dosage: 1 DF, QD
     Route: 048
     Dates: start: 201205
  4. OMEPRAZOLE [Concomitant]
     Dosage: 1 DF, QD
  5. OMEGA 3 [FISH OIL] [Concomitant]
     Dosage: 1 DF, QD
  6. SUPER B COMPLEX [Concomitant]
     Dosage: 1 DF, QD
  7. BIOTIN [Concomitant]
     Dosage: 5000 mcg/24hr, QD
  8. CALTRATE WITH VITAMIN D [Concomitant]
     Dosage: 2 DF, QD
  9. COLACE [Concomitant]
     Dosage: 100 mg, BID
  10. METOPROLOL [Concomitant]
     Indication: HYPERTENSION
     Dosage: 0.5 DF, QD
  11. PRAVASTATIN [Concomitant]
     Indication: BLOOD CHOLESTEROL INCREASED
     Dosage: 1 DF, QD
  12. METAMUCIL [Concomitant]
     Dosage: 3 DF, QD
  13. CENTRUM SILVER [Concomitant]
     Dosage: 1 DF, QD

REACTIONS (3)
  - Loss of consciousness [Recovered/Resolved]
  - Loss of consciousness [Recovered/Resolved]
  - Loss of consciousness [Recovered/Resolved]
